FAERS Safety Report 7903875-4 (Version None)
Quarter: 2011Q4

REPORT INFORMATION
  Report Type: 
  Country: None (occurrence: None)
  Receive Date: 20111109
  Receipt Date: 20111031
  Transmission Date: 20120403
  Serious: Yes (Hospitalization)
  Sender: FDA-Public Use
  Company Number: US-ASTRAZENECA-2011SE65662

PATIENT
  Age: 82 Year
  Sex: Female
  Weight: 63.5 kg

DRUGS (7)
  1. SEROQUEL [Suspect]
     Indication: SLEEP DISORDER
     Route: 048
  2. SEROQUEL [Suspect]
     Indication: DEMENTIA
     Route: 048
  3. SEROQUEL [Suspect]
     Route: 048
     Dates: start: 20110901
  4. SEROQUEL [Suspect]
     Route: 048
     Dates: start: 20110901
  5. IBUPROFEN [Concomitant]
     Indication: ARTHRITIS
  6. SEROQUEL [Suspect]
     Indication: ELEVATED MOOD
     Route: 048
  7. SEROQUEL [Suspect]
     Route: 048
     Dates: start: 20110901

REACTIONS (6)
  - AGGRESSION [None]
  - WEIGHT DECREASED [None]
  - ACCIDENT [None]
  - OBSESSIVE-COMPULSIVE DISORDER [None]
  - OFF LABEL USE [None]
  - ARTHRITIS [None]
